FAERS Safety Report 4577233-7 (Version None)
Quarter: 2005Q1

REPORT INFORMATION
  Report Type: 
  Country: None (occurrence: None)
  Receive Date: 20050209
  Receipt Date: 20050126
  Transmission Date: 20050727
  Serious: Yes (Death)
  Sender: FDA-Public Use
  Company Number: 2004AL001033

PATIENT
  Age: 73 Year
  Sex: 0

DRUGS (2)
  1. THEOPHYLLINE ELIXIR LIQUID [Suspect]
     Indication: CHRONIC OBSTRUCTIVE PULMONARY DISEASE
     Dosage: PO
     Route: 048
  2. CIPROFLOXACIN [Suspect]
     Dosage: PO
     Route: 048

REACTIONS (10)
  - ADVERSE DRUG REACTION [None]
  - AGITATION [None]
  - BLOOD PH DECREASED [None]
  - CONVULSION [None]
  - DRUG LEVEL ABOVE THERAPEUTIC [None]
  - EFFUSION [None]
  - ELECTROCARDIOGRAM QRS COMPLEX SHORTENED [None]
  - HAEMODIALYSIS [None]
  - LOBAR PNEUMONIA [None]
  - TACHYCARDIA [None]
